FAERS Safety Report 9927407 (Version 3)
Quarter: 2014Q1

REPORT INFORMATION
  Report Type: Spontaneous
  Country: US (occurrence: US)
  Receive Date: 20140226
  Receipt Date: 20140326
  Transmission Date: 20141002
  Serious: Yes (Hospitalization)
  Sender: FDA-Public Use
  Company Number: PHEH2014US003557

PATIENT
  Sex: Male

DRUGS (1)
  1. GLEEVEC [Suspect]
     Dosage: 100 MG, UNK

REACTIONS (2)
  - White blood cell count increased [Unknown]
  - Treatment failure [Unknown]
